FAERS Safety Report 6856268-5 (Version None)
Quarter: 2010Q3

REPORT INFORMATION
  Report Type: 
  Country: None (occurrence: None)
  Receive Date: 20100719
  Receipt Date: 20100706
  Transmission Date: 20110219
  Serious: Yes (Other)
  Sender: FDA-Public Use
  Company Number: PHHY2010MX45094

PATIENT
  Age: 66 Year
  Sex: Female

DRUGS (2)
  1. ACLASTA [Suspect]
     Indication: OSTEOPOROSIS
     Dosage: 1 INJECTION (5 MG/100 ML)
     Dates: start: 20090401
  2. PARACETAMOL [Concomitant]

REACTIONS (4)
  - BONE PAIN [None]
  - INFARCTION [None]
  - PAIN IN JAW [None]
  - SURGERY [None]
